FAERS Safety Report 8058522-0 (Version None)
Quarter: 2012Q1

REPORT INFORMATION
  Report Type: 
  Country: None (occurrence: None)
  Receive Date: 20120119
  Receipt Date: 20120119
  Transmission Date: 20120608
  Serious: Yes (Life-Threatening, Hospitalization, Disabling)
  Sender: FDA-Public Use
  Company Number: None

PATIENT
  Age: 60 Year
  Sex: Female
  Weight: 76.2043 kg

DRUGS (1)
  1. PRADAXA [Suspect]
     Indication: THROMBOSIS PROPHYLAXIS
     Dosage: 150MG 2 TIMES DAILY
     Dates: start: 20100101, end: 20111223

REACTIONS (3)
  - THROMBOSIS [None]
  - PULMONARY THROMBOSIS [None]
  - ATRIAL FIBRILLATION [None]
